FAERS Safety Report 5104622-4 (Version None)
Quarter: 2006Q3

REPORT INFORMATION
  Report Type: 
  Country: None (occurrence: None)
  Receive Date: 20060914
  Receipt Date: 20060831
  Transmission Date: 20061208
  Serious: Yes (Hospitalization)
  Sender: FDA-Public Use
  Company Number: FR-JNJFOC-20060902736

PATIENT
  Sex: Female

DRUGS (1)
  1. IXPRIM [Suspect]
     Indication: BACK PAIN
     Route: 048

REACTIONS (1)
  - ANGLE CLOSURE GLAUCOMA [None]
